FAERS Safety Report 6244964-2 (Version None)
Quarter: 2009Q2

REPORT INFORMATION
  Report Type: 
  Country: None (occurrence: None)
  Receive Date: 20090625
  Receipt Date: 20090617
  Transmission Date: 20091009
  Serious: Yes (Other)
  Sender: FDA-Public Use
  Company Number: PHHY2009JP09958

PATIENT
  Age: 51 Year
  Sex: Male

DRUGS (4)
  1. CERTICAN [Suspect]
     Indication: HEART TRANSPLANT
     Dosage: UNK
     Route: 048
     Dates: start: 20080701
  2. NEORAL [Suspect]
     Indication: HEART TRANSPLANT
     Dosage: UNK
     Route: 048
     Dates: start: 20040201
  3. PREDNISOLONE [Suspect]
     Indication: HEART TRANSPLANT
     Dosage: UNK
     Route: 048
     Dates: start: 20040201, end: 20070101
  4. PREDNISOLONE [Suspect]
     Dosage: UNK
     Route: 048

REACTIONS (4)
  - INTERLEUKIN-2 RECEPTOR INCREASED [None]
  - MALAISE [None]
  - PANEL-REACTIVE ANTIBODY INCREASED [None]
  - TRANSPLANT REJECTION [None]
